FAERS Safety Report 8930337 (Version 1)
Quarter: 2012Q4

REPORT INFORMATION
  Report Type: 
  Country: US (occurrence: US)
  Receive Date: 20121128
  Receipt Date: 20121128
  Transmission Date: 20130627
  Serious: Yes (Death)
  Sender: FDA-Public Use
  Company Number: US-GLAXOSMITHKLINE-A1003258A

PATIENT
  Age: 39 Year
  Sex: Male

DRUGS (4)
  1. VOTRIENT [Suspect]
     Indication: MALIGNANT URINARY TRACT NEOPLASM
     Dosage: 800MG Per day
     Route: 048
     Dates: start: 20121004
  2. ALPRAZOLAM [Concomitant]
  3. OXYCODONE [Concomitant]
  4. OPANA (OXYMORPHONE HCL) [Concomitant]

REACTIONS (1)
  - Death [Fatal]
